FAERS Safety Report 12190580 (Version 1)
Quarter: 2016Q1

REPORT INFORMATION
  Report Type: Spontaneous
  Country: US (occurrence: None)
  Receive Date: 20160317
  Receipt Date: 20160317
  Transmission Date: 20160526
  Serious: No
  Sender: FDA-Public Use
  Company Number: None

PATIENT
  Age: 39 Year
  Sex: Female
  Weight: 95.26 kg

DRUGS (2)
  1. MULTIVITAMIN [Concomitant]
     Active Substance: VITAMINS
  2. MIRENA [Suspect]
     Active Substance: LEVONORGESTREL

REACTIONS (8)
  - Arthralgia [None]
  - Depression [None]
  - Hot flush [None]
  - Viral infection [None]
  - Abdominal pain [None]
  - Night sweats [None]
  - Fatigue [None]
  - Mental impairment [None]

NARRATIVE: CASE EVENT DATE: 20150918
